FAERS Safety Report 5876269-3 (Version None)
Quarter: 2008Q3

REPORT INFORMATION
  Report Type: 
  Country: None (occurrence: None)
  Receive Date: 20080908
  Receipt Date: 20080908
  Transmission Date: 20090109
  Serious: Yes (Death, Life-Threatening, Hospitalization)
  Sender: FDA-Public Use
  Company Number: None

PATIENT
  Age: 57 Year
  Sex: Male
  Weight: 72.5755 kg

DRUGS (1)
  1. HUMIRA [Suspect]
     Indication: RHEUMATOID ARTHRITIS
     Dosage: 1 SHOT EVERY 2 WEEKS

REACTIONS (12)
  - BLOOD DISORDER [None]
  - CYSTITIS ESCHERICHIA [None]
  - DIALYSIS [None]
  - GALLBLADDER DISORDER [None]
  - HISTOPLASMOSIS [None]
  - LIVER DISORDER [None]
  - LIVER FUNCTION TEST ABNORMAL [None]
  - LUNG DISORDER [None]
  - RENAL DISORDER [None]
  - SKIN DISORDER [None]
  - STAPHYLOCOCCAL INFECTION [None]
  - VIRAL INFECTION [None]
